FAERS Safety Report 7553120-7 (Version None)
Quarter: 2011Q2

REPORT INFORMATION
  Report Type: 
  Country: None (occurrence: None)
  Receive Date: 20110616
  Receipt Date: 20110603
  Transmission Date: 20111010
  Serious: Yes (Hospitalization)
  Sender: FDA-Public Use
  Company Number: US-MYLANLABS-2011S1011741

PATIENT
  Age: 83 Year
  Sex: Male

DRUGS (3)
  1. OXALIPLATIN [Concomitant]
     Indication: OESOPHAGEAL ADENOCARCINOMA
     Route: 065
  2. FLUOROURACIL [Suspect]
     Indication: OESOPHAGEAL ADENOCARCINOMA
  3. LEUCOVORIN CALCIUM [Concomitant]
     Indication: OESOPHAGEAL ADENOCARCINOMA
     Route: 065

REACTIONS (1)
  - MYOPERICARDITIS [None]
